FAERS Safety Report 18292456 (Version 4)
Quarter: 2021Q2

REPORT INFORMATION
  Report Type: Report from Study
  Country: None (occurrence: BE)
  Receive Date: 20200922
  Receipt Date: 20210620
  Transmission Date: 20210717
  Serious: Yes (Other)
  Sender: FDA-Public Use
  Company Number: BE-ABBVIE-17K-013-2126256-00

PATIENT
  Sex: Male
  Weight: 88 kg

DRUGS (12)
  1. DUODOPA [Suspect]
     Active Substance: CARBIDOPA\LEVODOPA
     Dosage: MD= 8.0ML; CD= 3 ML/H DURING 16 HRS; EDA= 1.5 ML
     Route: 050
     Dates: start: 20171031, end: 20200305
  2. DUODOPA [Suspect]
     Active Substance: CARBIDOPA\LEVODOPA
     Dosage: DOSES CONTINUOUSLY MONITORED AND ADAPTED
     Route: 050
     Dates: start: 20170825, end: 20170912
  3. AZILECT [Concomitant]
     Active Substance: RASAGILINE MESYLATE
     Indication: PARKINSON^S DISEASE
  4. MIRAPEXIN [Concomitant]
     Active Substance: PRAMIPEXOLE
     Indication: PARKINSON^S DISEASE
  5. DUODOPA [Suspect]
     Active Substance: CARBIDOPA\LEVODOPA
     Dosage: MD= 8 ML; CD= 3 ML/H DURING 16 HRS; EDA= 1.5 ML
     Route: 050
     Dates: start: 20170912, end: 20171004
  6. DUODOPA [Suspect]
     Active Substance: CARBIDOPA\LEVODOPA
     Dosage: MD= 8ML, CD= 2.7ML/HR DURING 16HRS, ED= 1.5ML
     Route: 050
     Dates: start: 202008, end: 20200908
  7. DUODOPA [Suspect]
     Active Substance: CARBIDOPA\LEVODOPA
     Dosage: MD= 8.0 ML, CD= 2.7 ML/HR DURING 16HRS, ED= 1.5 ML
     Route: 050
     Dates: start: 20200908, end: 20201216
  8. STALEVO [Concomitant]
     Active Substance: CARBIDOPA\ENTACAPONE\LEVODOPA
     Indication: PARKINSON^S DISEASE
     Dosage: FORM STRENGTH: 100MG/25MG/200MG
  9. DUODOPA [Suspect]
     Active Substance: CARBIDOPA\LEVODOPA
     Indication: PARKINSON^S DISEASE
     Dosage: MD= 8 ML; CD= 2.3 ML/H DURING 16 HRS; EDA= 1 ML
     Route: 050
     Dates: start: 20170821, end: 20170825
  10. DUODOPA [Suspect]
     Active Substance: CARBIDOPA\LEVODOPA
     Dosage: MD= 10 ML; CD= 3 ML/H DURING 16 HRS; EDA= 1.5 ML
     Route: 050
     Dates: start: 20171004, end: 20171031
  11. DUODOPA [Suspect]
     Active Substance: CARBIDOPA\LEVODOPA
     Dosage: MD= 8ML, CD= 2.7ML/HR DURING 16HRS, ED= 1.5ML
     Route: 050
     Dates: start: 20200305, end: 202008
  12. DUODOPA [Suspect]
     Active Substance: CARBIDOPA\LEVODOPA
     Route: 050

REACTIONS (23)
  - Device issue [Unknown]
  - Embedded device [Unknown]
  - Hallucination [Unknown]
  - Palliative care [Unknown]
  - Freezing phenomenon [Unknown]
  - Device alarm issue [Unknown]
  - Mobility decreased [Unknown]
  - Amnesia [Not Recovered/Not Resolved]
  - Agitation [Unknown]
  - Device kink [Recovered/Resolved]
  - Device occlusion [Recovered/Resolved]
  - Aggression [Unknown]
  - Off label use [Recovered/Resolved]
  - Cognitive disorder [Unknown]
  - Hallucination [Not Recovered/Not Resolved]
  - Device occlusion [Not Recovered/Not Resolved]
  - Bedridden [Unknown]
  - General physical health deterioration [Not Recovered/Not Resolved]
  - Gait disturbance [Not Recovered/Not Resolved]
  - Malaise [Unknown]
  - Dementia [Not Recovered/Not Resolved]
  - Insomnia [Unknown]
  - Dementia [Unknown]

NARRATIVE: CASE EVENT DATE: 2017
